FAERS Safety Report 14899715 (Version 1)
Quarter: 2018Q2

REPORT INFORMATION
  Report Type: Spontaneous
  Country: CH (occurrence: CH)
  Receive Date: 20180516
  Receipt Date: 20180516
  Transmission Date: 20180711
  Serious: Yes (Hospitalization)
  Sender: FDA-Public Use
  Company Number: CH-TEVA-2018-CH-891035

PATIENT
  Age: 57 Year
  Sex: Female
  Weight: 69 kg

DRUGS (5)
  1. AMLODIPIN [Suspect]
     Active Substance: AMLODIPINE BESYLATE
     Indication: HYPERTENSION
     Route: 048
     Dates: end: 20180401
  2. PANTOPRAZOL [Suspect]
     Active Substance: PANTOPRAZOLE SODIUM
     Route: 048
     Dates: end: 20180314
  3. FLUIMUCIL [Suspect]
     Active Substance: ACETYLCYSTEINE
     Route: 048
     Dates: start: 20180304, end: 20180415
  4. MABTHERA [Suspect]
     Active Substance: RITUXIMAB
     Indication: POLYARTHRITIS
     Route: 041
     Dates: start: 201710, end: 20180209
  5. IRFEN [Suspect]
     Active Substance: IBUPROFEN
     Route: 048
     Dates: end: 20180314

REACTIONS (4)
  - Agranulocytosis [Recovered/Resolved]
  - Pyrexia [Recovered/Resolved]
  - Influenza like illness [Recovered/Resolved]
  - Sinusitis [Recovered/Resolved]

NARRATIVE: CASE EVENT DATE: 20180304
